FAERS Safety Report 9061493 (Version 1)
Quarter: 2013Q1

REPORT INFORMATION
  Report Type: Spontaneous
  Country: CO (occurrence: CO)
  Receive Date: 20130204
  Receipt Date: 20130204
  Transmission Date: 20140127
  Serious: Yes (Death, Hospitalization, Other)
  Sender: FDA-Public Use
  Company Number: CO-JNJFOC-20130114068

PATIENT
  Age: 18 Month
  Sex: Female

DRUGS (1)
  1. TRAMAL [Suspect]
     Indication: INFECTION PARASITIC
     Route: 065
     Dates: start: 20130119, end: 20130119

REACTIONS (6)
  - Multi-organ disorder [Fatal]
  - Encephalopathy [Fatal]
  - Pain [Not Recovered/Not Resolved]
  - Convulsion [Not Recovered/Not Resolved]
  - Wrong drug administered [Not Recovered/Not Resolved]
  - Overdose [Not Recovered/Not Resolved]
